FAERS Safety Report 11007910 (Version 2)
Quarter: 2015Q2

REPORT INFORMATION
  Report Type: Spontaneous
  Country: US (occurrence: US)
  Receive Date: 20150409
  Receipt Date: 20150525
  Transmission Date: 20150821
  Serious: No
  Sender: FDA-Public Use
  Company Number: US-JNJFOC-20130915744

PATIENT
  Sex: Female
  Weight: 72.58 kg

DRUGS (6)
  1. FOLIC ACID. [Concomitant]
     Active Substance: FOLIC ACID
     Route: 065
  2. APRISO [Concomitant]
     Active Substance: MESALAMINE
     Route: 065
  3. VITAMINS NOS [Concomitant]
     Active Substance: VITAMINS
     Route: 065
  4. IRON [Concomitant]
     Active Substance: IRON
     Route: 065
  5. REMICADE [Suspect]
     Active Substance: INFLIXIMAB
     Indication: COLITIS ULCERATIVE
     Route: 042
  6. FLUOXETINE [Concomitant]
     Active Substance: FLUOXETINE\FLUOXETINE HYDROCHLORIDE
     Route: 065

REACTIONS (1)
  - Therapeutic response decreased [Unknown]
